FAERS Safety Report 13226766 (Version 1)
Quarter: 2017Q1

REPORT INFORMATION
  Report Type: Report from Study
  Country: US (occurrence: US)
  Receive Date: 20170213
  Receipt Date: 20170213
  Transmission Date: 20170428
  Serious: Yes (Hospitalization, Other)
  Sender: FDA-Public Use
  Company Number: US-GILEAD-2017-0255772

PATIENT
  Age: 66 Year
  Sex: Female

DRUGS (1)
  1. AMBRISENTAN [Suspect]
     Active Substance: AMBRISENTAN
     Indication: PRODUCT USED FOR UNKNOWN INDICATION
     Dosage: 10 MG, UNK
     Route: 065
     Dates: start: 20130114

REACTIONS (12)
  - Regurgitation [Unknown]
  - Fall [Unknown]
  - Unevaluable event [Unknown]
  - Pneumonia [Unknown]
  - Urinary tract infection [Unknown]
  - Dysphagia [Unknown]
  - Aspiration [Unknown]
  - Confusional state [Unknown]
  - Chronic obstructive pulmonary disease [Unknown]
  - Intestinal obstruction [Unknown]
  - Balance disorder [Unknown]
  - Head injury [Unknown]
